FAERS Safety Report 6022772-5 (Version None)
Quarter: 2008Q4

REPORT INFORMATION
  Report Type: 
  Country: None (occurrence: None)
  Receive Date: 20081223
  Receipt Date: 20081209
  Transmission Date: 20090506
  Serious: Yes (Hospitalization)
  Sender: FDA-Public Use
  Company Number: 2008S1021881

PATIENT
  Age: 33 Year
  Sex: Female

DRUGS (2)
  1. NICARDIPINE HCL [Suspect]
     Indication: TOCOLYSIS
     Dosage: INTRAVENOUS DRIP
     Route: 041
  2. BETAMETHASONE [Concomitant]

REACTIONS (2)
  - ACUTE PULMONARY OEDEMA [None]
  - DRUG EXPOSURE DURING PREGNANCY [None]
